FAERS Safety Report 11429076 (Version 1)
Quarter: 2015Q3

REPORT INFORMATION
  Report Type: Spontaneous
  Country: US (occurrence: None)
  Receive Date: 20150827
  Receipt Date: 20150827
  Transmission Date: 20151125
  Serious: Yes (Other)
  Sender: FDA-Public Use
  Company Number: None

PATIENT
  Age: 84 Year
  Sex: Male
  Weight: 66.23 kg

DRUGS (2)
  1. CYRAMZA [Suspect]
     Active Substance: RAMUCIRUMAB
     Indication: RECTOSIGMOID CANCER METASTATIC
     Dosage: 15 MINUTES
     Route: 042
  2. CYRAMZA [Suspect]
     Active Substance: RAMUCIRUMAB
     Indication: RECTOSIGMOID CANCER METASTATIC
     Dosage: 15 MINUTES
     Route: 042

REACTIONS (9)
  - Respiratory rate increased [None]
  - Rash generalised [None]
  - Blood pressure systolic increased [None]
  - Flushing [None]
  - Blood pressure diastolic decreased [None]
  - Ear discomfort [None]
  - Pruritus [None]
  - Chest pain [None]
  - Oxygen saturation decreased [None]

NARRATIVE: CASE EVENT DATE: 20150826
